FAERS Safety Report 5201231-3 (Version None)
Quarter: 2007Q1

REPORT INFORMATION
  Report Type: 
  Country: None (occurrence: None)
  Receive Date: 20070103
  Receipt Date: 20061221
  Transmission Date: 20070707
  Serious: Yes (Other)
  Sender: FDA-Public Use
  Company Number: 15415

PATIENT
  Age: 70 Year
  Sex: Female

DRUGS (1)
  1. AMIODARONE HCL [Suspect]
     Indication: ATRIAL FIBRILLATION
     Dosage: 200 MG DAILY

REACTIONS (12)
  - ABNORMAL BEHAVIOUR [None]
  - ANAEMIA MACROCYTIC [None]
  - ANTI-THYROID ANTIBODY POSITIVE [None]
  - APATHY [None]
  - BLOOD CREATINE PHOSPHOKINASE INCREASED [None]
  - DEPRESSIVE SYMPTOM [None]
  - GAIT DISTURBANCE [None]
  - HYPOREFLEXIA [None]
  - HYPOTHYROIDISM [None]
  - MYOTONIA [None]
  - PIGMENTATION DISORDER [None]
  - SENSORY DISTURBANCE [None]
